FAERS Safety Report 8096957-0 (Version None)
Quarter: 2012Q1

REPORT INFORMATION
  Report Type: 
  Country: None (occurrence: None)
  Receive Date: 20120129
  Receipt Date: 20111205
  Transmission Date: 20120608
  Serious: No
  Sender: FDA-Public Use
  Company Number: US-ABBOTT-11P-163-0880748-00

PATIENT
  Age: 71 Year
  Sex: Female

DRUGS (11)
  1. NORVASC [Concomitant]
     Indication: PRODUCT USED FOR UNKNOWN INDICATION
  2. LASIX [Concomitant]
     Indication: PRODUCT USED FOR UNKNOWN INDICATION
  3. KLOR-CON [Concomitant]
     Indication: PRODUCT USED FOR UNKNOWN INDICATION
  4. SYNTHROID [Concomitant]
     Indication: PRODUCT USED FOR UNKNOWN INDICATION
  5. UNKNOWN MEDICATIONS [Concomitant]
     Indication: PRODUCT USED FOR UNKNOWN INDICATION
  6. WELLBUTRIN [Concomitant]
     Indication: PRODUCT USED FOR UNKNOWN INDICATION
  7. ZETIA [Concomitant]
     Indication: PRODUCT USED FOR UNKNOWN INDICATION
  8. HUMIRA [Suspect]
     Indication: CROHN'S DISEASE
     Dates: start: 20110926
  9. LIPITOR [Concomitant]
     Indication: PRODUCT USED FOR UNKNOWN INDICATION
  10. NYSPAN [Concomitant]
     Indication: PRODUCT USED FOR UNKNOWN INDICATION
  11. CLONIDINE [Concomitant]
     Indication: PRODUCT USED FOR UNKNOWN INDICATION

REACTIONS (1)
  - OEDEMA PERIPHERAL [None]
